FAERS Safety Report 4494789-3 (Version None)
Quarter: 2004Q4

REPORT INFORMATION
  Report Type: 
  Country: None (occurrence: None)
  Receive Date: 20041103
  Receipt Date: 20041018
  Transmission Date: 20050328
  Serious: Yes (Hospitalization)
  Sender: FDA-Public Use
  Company Number: 203108

PATIENT
  Sex: Female

DRUGS (9)
  1. AVONEX [Suspect]
     Indication: MULTIPLE SCLEROSIS
     Dosage: 30 MCG QW IM
     Route: 030
  2. BACLOFEN [Concomitant]
  3. NEURONTIN [Concomitant]
  4. INSULIN [Concomitant]
  5. OXYCONTIN [Concomitant]
  6. OXYCODONE HCL [Concomitant]
  7. LASIX [Concomitant]
  8. PROTONIX [Concomitant]
  9. CELEBREX [Concomitant]

REACTIONS (6)
  - DEPRESSED LEVEL OF CONSCIOUSNESS [None]
  - DISORIENTATION [None]
  - HALLUCINATION [None]
  - HEART RATE IRREGULAR [None]
  - HYPOTENSION [None]
  - MENTAL STATUS CHANGES [None]
